FAERS Safety Report 5358121-5 (Version None)
Quarter: 2007Q2

REPORT INFORMATION
  Report Type: 
  Country: None (occurrence: None)
  Receive Date: 20070530
  Receipt Date: 20061009
  Transmission Date: 20071010
  Serious: Yes (Hospitalization, Other)
  Sender: FDA-Public Use
  Company Number: US200608004219

PATIENT
  Age: 47 Year
  Sex: Female
  Weight: 88.9 kg

DRUGS (1)
  1. ZYPREXA [Suspect]
     Dosage: 2.5 MG
     Dates: start: 20010101, end: 20020101

REACTIONS (8)
  - CEREBROVASCULAR ACCIDENT [None]
  - CEREBROVASCULAR DISORDER [None]
  - DIABETES MELLITUS [None]
  - DIABETIC KETOACIDOSIS [None]
  - HYPERTENSION [None]
  - METABOLIC DISORDER [None]
  - OBESITY [None]
  - TRANSIENT ISCHAEMIC ATTACK [None]
